FAERS Safety Report 8059056-X (Version None)
Quarter: 2012Q1

REPORT INFORMATION
  Report Type: 
  Country: None (occurrence: None)
  Receive Date: 20120120
  Receipt Date: 20110613
  Transmission Date: 20120608
  Serious: No
  Sender: FDA-Public Use
  Company Number: US-BAUSCH-2011BL003860

PATIENT
  Age: 55 Year
  Sex: Female

DRUGS (2)
  1. ALAWAY [Suspect]
     Indication: EYE PRURITUS
     Route: 047
     Dates: start: 20110601, end: 20110601
  2. ALAWAY [Suspect]
     Indication: EYELID MARGIN CRUSTING
     Route: 047
     Dates: start: 20110601, end: 20110601

REACTIONS (1)
  - INSTILLATION SITE PAIN [None]
